FAERS Safety Report 17613964 (Version 2)
Quarter: 2023Q4

REPORT INFORMATION
  Report Type: Spontaneous
  Country: US (occurrence: US)
  Receive Date: 20200402
  Receipt Date: 20231202
  Transmission Date: 20240110
  Serious: Yes (Other)
  Sender: FDA-Public Use
  Company Number: US-BAYER-2020-053645

PATIENT
  Sex: Female

DRUGS (1)
  1. ALEVE [Suspect]
     Active Substance: NAPROXEN SODIUM
     Dosage: UNK
     Dates: start: 202002

REACTIONS (4)
  - Hypersensitivity [None]
  - Erythema [None]
  - Pruritus [None]
  - Loss of consciousness [None]

NARRATIVE: CASE EVENT DATE: 20200201
